FAERS Safety Report 22092194 (Version 9)
Quarter: 2023Q2

REPORT INFORMATION
  Report Type: Spontaneous
  Country: JP (occurrence: JP)
  Receive Date: 20230314
  Receipt Date: 20230617
  Transmission Date: 20230722
  Serious: Yes (Hospitalization, Other)
  Sender: FDA-Public Use
  Company Number: JP-AMGEN-JPNSP2023043478

PATIENT
  Age: 80 Year
  Sex: Female
  Weight: 80 kg

DRUGS (10)
  1. EVENITY [Suspect]
     Active Substance: ROMOSOZUMAB-AQQG
     Indication: Osteoporosis
     Dosage: 210 MILLIGRAM
     Route: 058
  2. EVENITY [Suspect]
     Active Substance: ROMOSOZUMAB-AQQG
     Dosage: 210 MILLIGRAM
     Route: 058
     Dates: start: 202305
  3. NEXIUM [Concomitant]
     Active Substance: ESOMEPRAZOLE MAGNESIUM
     Indication: Gastrooesophageal reflux disease
     Dosage: 20 MILLIGRAM, QD
  4. AZILSARTAN KAMEDOXOMIL [Concomitant]
     Active Substance: AZILSARTAN KAMEDOXOMIL
     Indication: Hypertension
     Dosage: 20 MILLIGRAM, QD
  5. CERCINE [Concomitant]
     Active Substance: DIAZEPAM
     Indication: Hypertension
     Dosage: 2 MILLIGRAM, BID
  6. MEVALOTIN PROTECT [Concomitant]
     Indication: Hyperlipidaemia
     Dosage: 5 MILLIGRAM, BID
  7. HERBESSER [Concomitant]
     Active Substance: DILTIAZEM HYDROCHLORIDE
     Indication: Hypertension
     Dosage: 30 MILLIGRAM, QD
  8. MOSAPRIDE CITRATE [Concomitant]
     Active Substance: MOSAPRIDE CITRATE
     Indication: Gastrooesophageal reflux disease
     Dosage: 5 MILLIGRAM, TID
  9. PERDIPINE-LA [Concomitant]
     Indication: Hypertension
     Dosage: 40 MILLIGRAM, BID
  10. CILNIDIPINE [Concomitant]
     Active Substance: CILNIDIPINE
     Indication: Hypertension
     Dosage: 5 MILLIGRAM, BID

REACTIONS (6)
  - Alanine aminotransferase increased [Recovered/Resolved]
  - Viral hepatitis carrier [Unknown]
  - Bile duct stone [Recovered/Resolved]
  - Pollakiuria [Recovering/Resolving]
  - Physical deconditioning [Unknown]
  - Pancreatic cyst [Unknown]

NARRATIVE: CASE EVENT DATE: 20230306
